FAERS Safety Report 5755428-4 (Version None)
Quarter: 2008Q2

REPORT INFORMATION
  Report Type: 
  Country: None (occurrence: None)
  Receive Date: 20080529
  Receipt Date: 20080529
  Transmission Date: 20081010
  Serious: Yes (Other)
  Sender: FDA-Public Use
  Company Number: None

PATIENT
  Sex: Male
  Weight: 79.3795 kg

DRUGS (2)
  1. VIAGRA [Suspect]
     Dosage: 1 PRN - 2 - 4 X WEEK
  2. CIALIS [Suspect]
     Dosage: 20 MG

REACTIONS (1)
  - ARTHROPATHY [None]
